APPROVED DRUG PRODUCT: METOCLOPRAMIDE HYDROCHLORIDE
Active Ingredient: METOCLOPRAMIDE HYDROCHLORIDE
Strength: EQ 5MG BASE/5ML
Dosage Form/Route: SOLUTION;ORAL
Application: A072744 | Product #001 | TE Code: AA
Applicant: GENUS LIFESCIENCES INC
Approved: May 28, 1991 | RLD: No | RS: Yes | Type: RX